FAERS Safety Report 4439204-0 (Version None)
Quarter: 2004Q3

REPORT INFORMATION
  Report Type: 
  Country: None (occurrence: None)
  Receive Date: 20040831
  Receipt Date: 20040810
  Transmission Date: 20050211
  Serious: Yes (Death)
  Sender: FDA-Public Use
  Company Number: A01200403848

PATIENT
  Age: 74 Year
  Sex: Male

DRUGS (1)
  1. CLOPIDOGREL - TABLET  - 75 MG [Suspect]
     Dosage: ORAL
     Route: 048

REACTIONS (6)
  - BLOOD CREATININE INCREASED [None]
  - DIALYSIS [None]
  - HAEMATOCRIT DECREASED [None]
  - PYREXIA [None]
  - SPLENECTOMY [None]
  - THROMBOTIC THROMBOCYTOPENIC PURPURA [None]
